FAERS Safety Report 22104091 (Version 1)
Quarter: 2023Q1

REPORT INFORMATION
  Report Type: Spontaneous
  Country: US (occurrence: None)
  Receive Date: 20230316
  Receipt Date: 20230316
  Transmission Date: 20230418
  Serious: No
  Sender: FDA-Public Use
  Company Number: None

PATIENT
  Age: 89 Year
  Sex: Male
  Weight: 87.54 kg

DRUGS (16)
  1. ABIRATERONE [Suspect]
     Active Substance: ABIRATERONE
     Indication: Prostate cancer
     Dosage: FREQUENCY : DAILY;?
     Route: 048
     Dates: start: 202301, end: 20230316
  2. ACETAMINOPHEN [Concomitant]
  3. AMLODIPINE [Concomitant]
     Active Substance: AMLODIPINE BESYLATE
  4. ATORVASTATIN [Concomitant]
  5. CYCLOBENZAPRINE [Concomitant]
  6. EZETIMIBE [Concomitant]
  7. FENOFIBRATE [Concomitant]
  8. FLUTICASONE [Concomitant]
  9. LORATADINE [Concomitant]
  10. LUPRON DEPOT [Concomitant]
  11. METOPROLOL [Concomitant]
  12. OMEPRAZOLE [Concomitant]
  13. PREDNISONE [Concomitant]
  14. ROPINIROLE [Concomitant]
  15. TYLENOL [Concomitant]
  16. WARFARIN [Concomitant]

REACTIONS (2)
  - Prostate cancer [None]
  - Malignant neoplasm progression [None]
